FAERS Safety Report 23076599 (Version 1)
Quarter: 2023Q4

REPORT INFORMATION
  Report Type: Spontaneous
  Country: US (occurrence: US)
  Receive Date: 20231017
  Receipt Date: 20231017
  Transmission Date: 20240109
  Serious: Yes (Other)
  Sender: FDA-Public Use
  Company Number: US-009507513-2310USA003871

PATIENT
  Age: 43 Year
  Sex: Male

DRUGS (2)
  1. KEYTRUDA [Suspect]
     Active Substance: PEMBROLIZUMAB
     Indication: Hodgkin^s disease recurrent
     Dosage: STARTED 6 YEARS AFTER DIAGNOSIS, Q3W
  2. KEYTRUDA [Suspect]
     Active Substance: PEMBROLIZUMAB
     Dosage: RESTARTED 30 MONTHS AFTER FIRST CESSATION

REACTIONS (1)
  - Seronegative arthritis [Recovered/Resolved]
